FAERS Safety Report 15235662 (Version 1)
Quarter: 2018Q3

REPORT INFORMATION
  Report Type: Report from Study
  Country: CO (occurrence: CO)
  Receive Date: 20180803
  Receipt Date: 20180803
  Transmission Date: 20181010
  Serious: Yes (Death)
  Sender: FDA-Public Use
  Company Number: CO-ASTRAZENECA-2018SE98075

PATIENT
  Age: 26987 Day
  Sex: Female

DRUGS (1)
  1. FASLODEX [Suspect]
     Active Substance: FULVESTRANT
     Indication: BREAST CANCER
     Dosage: 2 SYRINGES 250 MG, MONTHLY
     Route: 030
     Dates: start: 20160815, end: 20171204

REACTIONS (1)
  - Death [Fatal]

NARRATIVE: CASE EVENT DATE: 20171204
